FAERS Safety Report 6706217-5 (Version None)
Quarter: 2010Q2

REPORT INFORMATION
  Report Type: 
  Country: None (occurrence: None)
  Receive Date: 20100503
  Receipt Date: 20100422
  Transmission Date: 20101027
  Serious: Yes (Other)
  Sender: FDA-Public Use
  Company Number: US-AMGEN-QUU406247

PATIENT
  Sex: Male

DRUGS (3)
  1. NPLATE [Suspect]
     Indication: IDIOPATHIC THROMBOCYTOPENIC PURPURA
     Dates: start: 20090508, end: 20090508
  2. DANAZOL [Concomitant]
     Dates: start: 20090427
  3. RITUXIMAB [Concomitant]
     Dates: start: 20070511

REACTIONS (1)
  - BONE MARROW DISORDER [None]
